FAERS Safety Report 23725275 (Version 2)
Quarter: 2024Q2

REPORT INFORMATION
  Report Type: Spontaneous
  Country: FR (occurrence: FR)
  Receive Date: 20240410
  Receipt Date: 20240524
  Transmission Date: 20240716
  Serious: Yes (Hospitalization)
  Sender: FDA-Public Use
  Company Number: FR-AFSSAPS-PO2024000355

PATIENT
  Age: 88 Year
  Sex: Female
  Weight: 60 kg

DRUGS (8)
  1. CAMZYOS [Suspect]
     Active Substance: MAVACAMTEN
     Indication: Hypertrophic cardiomyopathy
     Route: 048
     Dates: start: 20240131, end: 20240209
  2. APIXABAN [Concomitant]
     Active Substance: APIXABAN
  3. OXAZEPAM [Concomitant]
     Active Substance: OXAZEPAM
  4. ZOPICLONE [Concomitant]
     Active Substance: ZOPICLONE
  5. POTASSIUM [Concomitant]
     Active Substance: POTASSIUM
  6. FUROSEMIDE [Concomitant]
     Active Substance: FUROSEMIDE
  7. NADOLOL [Concomitant]
     Active Substance: NADOLOL
  8. ACETAMINOPHEN [Concomitant]
     Active Substance: ACETAMINOPHEN

REACTIONS (1)
  - Dyspnoea [Recovered/Resolved]

NARRATIVE: CASE EVENT DATE: 20240131
